FAERS Safety Report 6291469-9 (Version None)
Quarter: 2009Q3

REPORT INFORMATION
  Report Type: 
  Country: None (occurrence: None)
  Receive Date: 20090729
  Receipt Date: 20090729
  Transmission Date: 20100115
  Serious: Yes (Other)
  Sender: FDA-Public Use
  Company Number: None

PATIENT
  Sex: Female
  Weight: 54.6 kg

DRUGS (3)
  1. ADRIAMYCIN PFS [Suspect]
     Indication: BREAST CANCER
     Dosage: 99 MG Q2 WEEKS X 4 WEEK IV
     Route: 042
     Dates: start: 19980401, end: 19980501
  2. TAXOL [Suspect]
     Indication: BREAST CANCER
     Dosage: 289 MG Q 2 WEEKS X 4 WEEK IV
     Route: 042
     Dates: start: 19980401, end: 19980501
  3. CYTOXAN [Suspect]
     Indication: BREAST CANCER
     Dosage: 990 MG Q 2 WEEKS X 4 WEEK IV
     Route: 042
     Dates: start: 19980401, end: 19980501

REACTIONS (1)
  - LYMPHOMA [None]
